FAERS Safety Report 9050002 (Version 1)
Quarter: 2013Q1

REPORT INFORMATION
  Report Type: Spontaneous
  Country: US (occurrence: US)
  Receive Date: 20130205
  Receipt Date: 20130205
  Transmission Date: 20140127
  Serious: No
  Sender: FDA-Public Use
  Company Number: US-GLAXOSMITHKLINE-A0962230A

PATIENT
  Age: 47 Year
  Sex: Male

DRUGS (2)
  1. ARIXTRA [Suspect]
     Indication: KNEE OPERATION
     Dosage: 2.5MG PER DAY
     Route: 058
     Dates: start: 20120111
  2. NO CONCURRENT MEDICATION [Concomitant]

REACTIONS (2)
  - Pruritus generalised [Unknown]
  - Rash [Unknown]
